FAERS Safety Report 9349500 (Version 1)
Quarter: 2013Q2

REPORT INFORMATION
  Report Type: Spontaneous
  Country: US (occurrence: US)
  Receive Date: 20130614
  Receipt Date: 20130614
  Transmission Date: 20140414
  Serious: Yes (Hospitalization)
  Sender: FDA-Public Use
  Company Number: US-GLAXOSMITHKLINE-A0837870A

PATIENT
  Age: 74 Year
  Sex: Female

DRUGS (1)
  1. AVANDIA [Suspect]
     Indication: DIABETES MELLITUS
     Dosage: 4MG PER DAY
     Route: 048
     Dates: start: 20040219, end: 20071105

REACTIONS (3)
  - Cerebrovascular accident [Not Recovered/Not Resolved]
  - Macular oedema [Unknown]
  - Cardiovascular disorder [Unknown]
